FAERS Safety Report 12186915 (Version 1)
Quarter: 2016Q1

REPORT INFORMATION
  Report Type: Spontaneous
  Country: US (occurrence: US)
  Receive Date: 20160317
  Receipt Date: 20160317
  Transmission Date: 20160526
  Serious: No
  Sender: FDA-Public Use
  Company Number: US-VERTEX PHARMACEUTICALS-2016-001596

PATIENT
  Age: 52 Year
  Sex: Female

DRUGS (20)
  1. MUCINEX [Suspect]
     Active Substance: GUAIFENESIN
     Route: 065
  2. FERROUS SULFATE [Concomitant]
     Active Substance: FERROUS SULFATE\FERROUS SULFATE, DRIED
  3. CLONAZEPAM. [Concomitant]
     Active Substance: CLONAZEPAM
  4. CAYSTON [Concomitant]
     Active Substance: AZTREONAM
  5. DICLOFENAC [Concomitant]
     Active Substance: DICLOFENAC
  6. GUANFACINE. [Concomitant]
     Active Substance: GUANFACINE
  7. LORATADINE. [Suspect]
     Active Substance: LORATADINE
     Route: 065
  8. ACETYLCYSTEINE. [Concomitant]
     Active Substance: ACETYLCYSTEINE
  9. ZOLOFT [Concomitant]
     Active Substance: SERTRALINE HYDROCHLORIDE
  10. LEVALBUTEROL. [Concomitant]
     Active Substance: LEVALBUTEROL
  11. SALINE [Concomitant]
  12. AZITHROMYCIN ANHYDROUS. [Concomitant]
     Active Substance: AZITHROMYCIN ANHYDROUS
  13. ADVAIR HFA [Concomitant]
     Active Substance: FLUTICASONE PROPIONATE\SALMETEROL XINAFOATE
  14. PULMOZYME [Concomitant]
     Active Substance: DORNASE ALFA
  15. NYSTATIN. [Concomitant]
     Active Substance: NYSTATIN
  16. PANCRELIPASE. [Concomitant]
     Active Substance: PANCRELIPASE
  17. QUETIAPINE [Concomitant]
     Active Substance: QUETIAPINE
  18. PROTONIX [Concomitant]
     Active Substance: PANTOPRAZOLE SODIUM
  19. KALYDECO [Suspect]
     Active Substance: IVACAFTOR
     Indication: CYSTIC FIBROSIS
     Dosage: 150 MG, BID
     Route: 048
     Dates: start: 20150702
  20. MULTI VITAMIN [Concomitant]
     Active Substance: VITAMINS

REACTIONS (1)
  - Haemoptysis [Unknown]

NARRATIVE: CASE EVENT DATE: 201603
